FAERS Safety Report 13781995 (Version 1)
Quarter: 2017Q3

REPORT INFORMATION
  Report Type: Spontaneous
  Country: GB (occurrence: GB)
  Receive Date: 20170724
  Receipt Date: 20170724
  Transmission Date: 20171127
  Serious: Yes (Other)
  Sender: FDA-Public Use
  Company Number: GB-PFIZER INC-2017315626

PATIENT
  Age: 51 Year
  Sex: Female

DRUGS (13)
  1. CODEINE PHOSPHATE [Concomitant]
     Active Substance: CODEINE PHOSPHATE
     Dosage: 1 DF, 4X/DAY
     Dates: start: 20170629, end: 20170706
  2. GABAPENTIN. [Suspect]
     Active Substance: GABAPENTIN
     Dosage: UNK
     Dates: start: 20170711
  3. DERMOL /01330701/ [Concomitant]
     Dosage: 1 DF, AS NEEDED
     Dates: start: 20170224
  4. DALACIN /00166002/ [Concomitant]
     Active Substance: CLINDAMYCIN HYDROCHLORIDE
     Dosage: 1 DF, 2X/DAY
     Dates: start: 20161230
  5. DIPROBASE /01132701/ [Concomitant]
     Dosage: AS DIRECTED
     Dates: start: 20161230
  6. PRIMIDONE. [Concomitant]
     Active Substance: PRIMIDONE
     Dosage: 5 DF, 1X/DAY
     Dates: start: 20170224
  7. DICLOFENAC SODIUM. [Concomitant]
     Active Substance: DICLOFENAC SODIUM
     Dosage: 1 DF, 1X/DAY (AT NIGHT)
     Dates: start: 20170710
  8. MACROGOL [Concomitant]
     Active Substance: POLYETHYLENE GLYCOLS
     Dosage: 1-3 DAILY (UP TO 8 TO START)
     Dates: start: 20170706, end: 20170707
  9. TEGRETOL [Concomitant]
     Active Substance: CARBAMAZEPINE
     Dosage: 8 DF, 1X/DAY
     Dates: start: 20170404
  10. HYDROCORTISONE. [Concomitant]
     Active Substance: HYDROCORTISONE
     Dosage: APPLY AS DIRECTED
     Dates: start: 20161230
  11. PROTOPIC [Concomitant]
     Active Substance: TACROLIMUS
     Dosage: AS DIRECTED BY HOSPITAL
     Dates: start: 20161230
  12. CLOBAZAM [Concomitant]
     Active Substance: CLOBAZAM
     Indication: EPILEPSY
     Dosage: 2 DF, 1X/DAY (AT NIGHT)
     Dates: start: 20170224
  13. NAPROXEN. [Concomitant]
     Active Substance: NAPROXEN
     Dosage: 1 DF, 2X/DAY (WITH FOOD)
     Dates: start: 20170621

REACTIONS (2)
  - Feeling of body temperature change [Recovered/Resolved]
  - Confusional state [Recovered/Resolved]

NARRATIVE: CASE EVENT DATE: 20170711
